FAERS Safety Report 6834812-1 (Version None)
Quarter: 2010Q3

REPORT INFORMATION
  Report Type: 
  Country: None (occurrence: None)
  Receive Date: 20100712
  Receipt Date: 20070418
  Transmission Date: 20110219
  Serious: No
  Sender: FDA-Public Use
  Company Number: US-PFIZER INC-2007031799

PATIENT
  Sex: Female
  Weight: 160 kg

DRUGS (2)
  1. CHANTIX [Suspect]
     Indication: SMOKING CESSATION THERAPY
     Dates: start: 20070401, end: 20070415
  2. ALCOHOL [Interacting]
     Dates: start: 20070414

REACTIONS (4)
  - AMNESIA [None]
  - CONTUSION [None]
  - DRUG INTERACTION [None]
  - FALL [None]
